FAERS Safety Report 6958715-7 (Version None)
Quarter: 2010Q3

REPORT INFORMATION
  Report Type: 
  Country: None (occurrence: None)
  Receive Date: 20100831
  Receipt Date: 20100818
  Transmission Date: 20110219
  Serious: Yes (Hospitalization)
  Sender: FDA-Public Use
  Company Number: PHHY2010SE55490

PATIENT
  Sex: Female

DRUGS (1)
  1. PRAVIDEL [Suspect]
     Indication: LACTATION INHIBITION THERAPY
     Dosage: 2.5 MG, TWICE DAILY
     Route: 048
     Dates: start: 20100617, end: 20100621

REACTIONS (8)
  - ACUTE MYOCARDIAL INFARCTION [None]
  - BLOOD CREATINE PHOSPHOKINASE INCREASED [None]
  - BLOOD CREATINE PHOSPHOKINASE MB INCREASED [None]
  - ELECTROCARDIOGRAM ST SEGMENT DEPRESSION [None]
  - FIBRIN D DIMER INCREASED [None]
  - MYOCARDIAL ISCHAEMIA [None]
  - PULMONARY EMBOLISM [None]
  - TROPONIN T INCREASED [None]
